FAERS Safety Report 26127230 (Version 1)
Quarter: 2025Q4

REPORT INFORMATION
  Report Type: Spontaneous
  Country: EU (occurrence: EU)
  Receive Date: 20251205
  Receipt Date: 20251205
  Transmission Date: 20260118
  Serious: Yes (Hospitalization, Other)
  Sender: MYLAN
  Company Number: EU-ROCHE-10000124848

PATIENT
  Age: 51 Year
  Sex: Female
  Weight: 66 kg

DRUGS (23)
  1. PACLITAXEL [Suspect]
     Active Substance: PACLITAXEL
     Indication: Triple negative breast cancer
     Dosage: 100 MILLIGRAM/SQ. METER, Q3W (ON DAYS 1, 8, AND 15)
     Dates: start: 20141015
  2. PACLITAXEL [Suspect]
     Active Substance: PACLITAXEL
     Dosage: 130 MILLIGRAM
  3. CARBOPLATIN [Suspect]
     Active Substance: CARBOPLATIN
     Indication: Triple negative breast cancer
     Dosage: UNK UNK, Q3W (AUC 5)
     Dates: start: 20241015
  4. CARBOPLATIN [Suspect]
     Active Substance: CARBOPLATIN
     Dosage: 570 MILLIGRAM
  5. ATEZOLIZUMAB [Suspect]
     Active Substance: ATEZOLIZUMAB
     Indication: Triple negative breast cancer
     Dosage: 1200 MILLIGRAM, Q3W
     Dates: start: 20241015
  6. ATEZOLIZUMAB [Suspect]
     Active Substance: ATEZOLIZUMAB
     Dosage: 1200 MILLIGRAM
  7. ATEZOLIZUMAB [Suspect]
     Active Substance: ATEZOLIZUMAB
     Dosage: 1200 MILLIGRAM
  8. TIRAGOLUMAB [Suspect]
     Active Substance: TIRAGOLUMAB
     Indication: Triple negative breast cancer
     Dosage: 600 MILLIGRAM, Q3W
     Dates: start: 20241015
  9. TIRAGOLUMAB [Suspect]
     Active Substance: TIRAGOLUMAB
     Dosage: 600 MILLIGRAM
  10. TIRAGOLUMAB [Suspect]
     Active Substance: TIRAGOLUMAB
     Dosage: 600 MILLIGRAM
  11. Akynzeo [Concomitant]
     Dosage: UNK
  12. PREDNISONE [Concomitant]
     Active Substance: PREDNISONE
     Dosage: UNK
  13. BILASTINE [Concomitant]
     Active Substance: BILASTINE
     Dosage: 20 MILLIGRAM, QD (IN THE EVENING)
  14. BILASTINE [Concomitant]
     Active Substance: BILASTINE
     Dosage: 20 MILLIGRAM, QD
     Dates: start: 20250130, end: 20250301
  15. INNOHEP [Concomitant]
     Active Substance: TINZAPARIN SODIUM
     Dosage: 14000 INTERNATIONAL UNIT
     Dates: start: 20250130, end: 20250220
  16. INNOHEP [Concomitant]
     Active Substance: TINZAPARIN SODIUM
     Dosage: 12000 INTERNATIONAL UNIT, QD (SC)
  17. INNOHEP [Concomitant]
     Active Substance: TINZAPARIN SODIUM
     Dosage: 1200 MILLIGRAM
     Dates: start: 20250121, end: 20250220
  18. LANSOPRAZOLE [Concomitant]
     Active Substance: LANSOPRAZOLE
     Dosage: 30 MILLIGRAM, QD
  19. LANSOPRAZOLE [Concomitant]
     Active Substance: LANSOPRAZOLE
     Dosage: 15 MILLIGRAM
  20. PANTOPRAZOLE [Concomitant]
     Active Substance: PANTOPRAZOLE
     Dosage: 40 MILLIGRAM, QD
  21. CEFAZOLIN [Concomitant]
     Active Substance: CEFAZOLIN
     Dosage: 2 GRAM
  22. DOLIPRANE [Concomitant]
     Active Substance: ACETAMINOPHEN
     Dosage: 6 DOSAGE FORM, QD
     Dates: start: 20250130, end: 20250301
  23. ACETAMINOPHEN [Concomitant]
     Active Substance: ACETAMINOPHEN
     Dosage: UNK UNK, PRN (AS NEEDED)

REACTIONS (6)
  - Implant site infection [Recovered/Resolved]
  - Device related infection [Recovered/Resolved]
  - Bacteraemia [Recovered/Resolved]
  - Toxic skin eruption [Recovered/Resolved]
  - Pyrexia [Not Recovered/Not Resolved]
  - Sepsis [Not Recovered/Not Resolved]

NARRATIVE: CASE EVENT DATE: 20241024
